FAERS Safety Report 8357713-9 (Version None)
Quarter: 2012Q2

REPORT INFORMATION
  Report Type: 
  Country: None (occurrence: None)
  Receive Date: 20120514
  Receipt Date: 20120501
  Transmission Date: 20120825
  Serious: Yes (Hospitalization)
  Sender: FDA-Public Use
  Company Number: US-MERCK-1203USA02348

PATIENT
  Age: 69 Year
  Sex: Male

DRUGS (3)
  1. COUMADIN [Concomitant]
     Route: 065
  2. COZAAR [Suspect]
     Dosage: GREEN
     Route: 048
  3. COZAAR [Suspect]
     Indication: HYPERTENSION
     Dosage: WHITE
     Route: 048
     Dates: start: 20030101

REACTIONS (2)
  - BLOOD PRESSURE INCREASED [None]
  - HYPERTENSION [None]
